FAERS Safety Report 9901648 (Version 3)
Quarter: 2014Q1

REPORT INFORMATION
  Report Type: Spontaneous
  Country: US (occurrence: US)
  Receive Date: 20140217
  Receipt Date: 20140321
  Transmission Date: 20141002
  Serious: Yes (Other)
  Sender: FDA-Public Use
  Company Number: ALCN2014US001160

PATIENT
  Age: 71 Year
  Sex: Male
  Weight: 80.73 kg

DRUGS (3)
  1. AZOPT [Suspect]
     Indication: GLAUCOMA
     Dosage: 1 GTT, BID
     Route: 047
     Dates: start: 20140122, end: 20140129
  2. AZOPT [Suspect]
     Dosage: 1 GTT, QD
     Route: 047
     Dates: start: 201401, end: 201401
  3. XANAX [Concomitant]
     Indication: INSOMNIA
     Dosage: UNK
     Dates: start: 2004

REACTIONS (8)
  - Depressed mood [Recovered/Resolved]
  - Anxiety [Recovered/Resolved]
  - Hypersensitivity [Recovered/Resolved]
  - Headache [Recovered/Resolved]
  - Fatigue [Recovered/Resolved]
  - Eye pain [Recovered/Resolved]
  - Ocular hyperaemia [Recovered/Resolved]
  - Eye inflammation [Recovered/Resolved]
